FAERS Safety Report 16823117 (Version 1)
Quarter: 2019Q3

REPORT INFORMATION
  Report Type: Spontaneous
  Country: US (occurrence: US)
  Receive Date: 20190918
  Receipt Date: 20190918
  Transmission Date: 20191005
  Serious: No
  Sender: FDA-Public Use
  Company Number: US-AMGEN INC.-USASP2019152771

PATIENT
  Age: 68 Year
  Sex: Female

DRUGS (1)
  1. AIMOVIG [Suspect]
     Active Substance: ERENUMAB-AOOE
     Indication: MIGRAINE
     Dosage: 70 MILLIGRAM, QMO
     Route: 065
     Dates: start: 201808, end: 201907

REACTIONS (3)
  - Sleep disorder due to a general medical condition [Not Recovered/Not Resolved]
  - Therapeutic product effect decreased [Unknown]
  - Alopecia [Not Recovered/Not Resolved]

NARRATIVE: CASE EVENT DATE: 201901
